FAERS Safety Report 23756966 (Version 2)
Quarter: 2024Q2

REPORT INFORMATION
  Report Type: Spontaneous
  Country: ES (occurrence: ES)
  Receive Date: 20240418
  Receipt Date: 20240515
  Transmission Date: 20240716
  Serious: Yes (Hospitalization, Other)
  Sender: FDA-Public Use
  Company Number: ES-Accord-417724

PATIENT
  Age: 71 Year
  Sex: Female
  Weight: 87.5 kg

DRUGS (3)
  1. CARBOPLATIN [Suspect]
     Active Substance: CARBOPLATIN
     Indication: Small cell lung cancer limited stage
     Dosage: 603.31 MG, EVERY 3 WEEKS, AUC 5
     Dates: start: 20240122
  2. ETOPOSIDE [Suspect]
     Active Substance: ETOPOSIDE
     Indication: Small cell lung cancer limited stage
     Dosage: 201 MG, EVERY 3 WEEKS
     Dates: start: 20240122
  3. UREADIN [Concomitant]
     Dosage: LOTION/SHAMPOO, 100%
     Route: 061
     Dates: start: 20240302

REACTIONS (1)
  - Pneumonia [Recovered/Resolved]

NARRATIVE: CASE EVENT DATE: 20240311
